FAERS Safety Report 6989566-5 (Version None)
Quarter: 2010Q3

REPORT INFORMATION
  Report Type: 
  Country: None (occurrence: None)
  Receive Date: 20100916
  Receipt Date: 20091230
  Transmission Date: 20110219
  Serious: Yes (Other)
  Sender: FDA-Public Use
  Company Number: US-PFIZER INC-2010000284

PATIENT
  Sex: Male
  Weight: 101 kg

DRUGS (3)
  1. LYRICA [Suspect]
     Indication: PAIN
     Dosage: UNK TWICE A DAY
     Route: 048
  2. PERCOCET [Suspect]
     Indication: PAIN
     Dosage: 2 1/2 TAB (EACH TAB =10/325) FIVE TIMES A DAY
     Route: 048
  3. CYMBALTA [Concomitant]
     Dosage: 60 MG, 2X/DAY
     Route: 048

REACTIONS (3)
  - CONFUSIONAL STATE [None]
  - DYSARTHRIA [None]
  - KNEE ARTHROPLASTY [None]
